FAERS Safety Report 25935996 (Version 2)
Quarter: 2025Q4

REPORT INFORMATION
  Report Type: Spontaneous
  Country: JP (occurrence: JP)
  Receive Date: 20251017
  Receipt Date: 20251112
  Transmission Date: 20260117
  Serious: Yes (Hospitalization, Other)
  Sender: MSN LABORATORIES PRIVATE LIMITED
  Company Number: JP-MSNLABS-2025MSNLIT03051

PATIENT

DRUGS (3)
  1. PACLITAXEL [Suspect]
     Active Substance: PACLITAXEL
     Indication: Fallopian tube cancer stage III
     Dosage: DOSE APPROXIMATELY 130 MG PER ADMINISTRATION, (3-WEEKS-ON/1-WEEK-OFF)
     Route: 042
  2. CARBOPLATIN [Suspect]
     Active Substance: CARBOPLATIN
     Indication: Fallopian tube cancer stage III
     Route: 065
  3. BEVACIZUMAB [Suspect]
     Active Substance: BEVACIZUMAB
     Indication: Fallopian tube cancer stage III
     Route: 065

REACTIONS (1)
  - Sarcoidosis [Recovered/Resolved]
